FAERS Safety Report 10208777 (Version 3)
Quarter: 2014Q2

REPORT INFORMATION
  Report Type: Report from Study
  Country: US (occurrence: US)
  Receive Date: 20140530
  Receipt Date: 20140623
  Transmission Date: 20141212
  Serious: Yes (Death, Hospitalization, Other)
  Sender: FDA-Public Use
  Company Number: US-JNJFOC-20140519690

PATIENT
  Age: 67 Year
  Sex: Male
  Weight: 86 kg

DRUGS (4)
  1. IMBRUVICA [Suspect]
     Indication: CHRONIC LYMPHOCYTIC LEUKAEMIA
     Route: 048
  2. IMBRUVICA [Suspect]
     Indication: CHRONIC LYMPHOCYTIC LEUKAEMIA
     Route: 048
     Dates: start: 20140409, end: 20140422
  3. TROLAMINE SALICYLATE [Concomitant]
     Indication: PAIN
  4. IRON [Concomitant]
     Indication: IRON DEFICIENCY ANAEMIA
     Route: 042

REACTIONS (15)
  - Metabolic encephalopathy [Unknown]
  - Hepatic failure [Unknown]
  - Jaundice cholestatic [Unknown]
  - Inappropriate antidiuretic hormone secretion [Unknown]
  - Disease progression [Fatal]
  - Renal failure [Unknown]
  - Dehydration [Unknown]
  - Sepsis [Unknown]
  - Pancytopenia [Unknown]
  - Malnutrition [Unknown]
  - Hypomagnesaemia [Unknown]
  - Fatigue [Unknown]
  - Nausea [Unknown]
  - Diarrhoea [Unknown]
  - Asthenia [Unknown]
